FAERS Safety Report 8947029 (Version 2)
Quarter: 2013Q1

REPORT INFORMATION
  Report Type: Report from Study
  Country: FR (occurrence: FR)
  Receive Date: 20121205
  Receipt Date: 20130104
  Transmission Date: 20140127
  Serious: Yes (Hospitalization)
  Sender: FDA-Public Use
  Company Number: FR-JNJFOC-20121114832

PATIENT
  Age: 11 Year
  Sex: Male
  Weight: 31.8 kg

DRUGS (2)
  1. REMICADE [Suspect]
     Indication: CROHN^S DISEASE
     Route: 042
     Dates: start: 20090117
  2. HUMIRA [Suspect]
     Indication: CROHN^S DISEASE
     Dates: start: 20091216

REACTIONS (2)
  - Crohn^s disease [Recovered/Resolved]
  - Gastroenteritis rotavirus [Recovered/Resolved]
